FAERS Safety Report 13855758 (Version 2)
Quarter: 2017Q3

REPORT INFORMATION
  Report Type: Spontaneous
  Country: DE (occurrence: DE)
  Receive Date: 20170810
  Receipt Date: 20170828
  Transmission Date: 20171127
  Serious: Yes (Other)
  Sender: FDA-Public Use
  Company Number: DE-PFIZER INC-2017289243

PATIENT
  Age: 31 Year
  Sex: Female
  Weight: 90 kg

DRUGS (2)
  1. TREVILOR RETARD [Suspect]
     Active Substance: VENLAFAXINE HYDROCHLORIDE
     Indication: DEPRESSION
     Dosage: 112.5 MG, 1X/DAY
     Route: 048
  2. CHLORMADINONE ACETATE [Interacting]
     Active Substance: CHLORMADINONE ACETATE
     Dosage: 2 MG, 1X/DAY
     Route: 048

REACTIONS (2)
  - Drug effect decreased [Recovering/Resolving]
  - Inhibitory drug interaction [Recovering/Resolving]

NARRATIVE: CASE EVENT DATE: 20170613
